FAERS Safety Report 22088491 (Version 2)
Quarter: 2023Q1

REPORT INFORMATION
  Report Type: Report from Study
  Country: US (occurrence: US)
  Receive Date: 20230313
  Receipt Date: 20230315
  Transmission Date: 20230418
  Serious: Yes (Other)
  Sender: FDA-Public Use
  Company Number: US-UCBSA-2023008907

PATIENT
  Sex: Female

DRUGS (1)
  1. CERTOLIZUMAB PEGOL [Suspect]
     Active Substance: CERTOLIZUMAB PEGOL
     Indication: Rheumatoid arthritis
     Dosage: 400 MILLIGRAM, EV 2 WEEKS(QOW)
     Route: 058
     Dates: start: 20230217

REACTIONS (5)
  - Blindness unilateral [Not Recovered/Not Resolved]
  - Retinal detachment [Not Recovered/Not Resolved]
  - Macular detachment [Not Recovered/Not Resolved]
  - Anxiety [Not Recovered/Not Resolved]
  - Eye disorder [Not Recovered/Not Resolved]
